FAERS Safety Report 24201871 (Version 1)
Quarter: 2024Q3

REPORT INFORMATION
  Report Type: Spontaneous
  Country: US (occurrence: US)
  Receive Date: 20240812
  Receipt Date: 20240812
  Transmission Date: 20241016
  Serious: No
  Sender: JOURNEY MEDICAL CORPORATION
  Company Number: US-JOURNEY MEDICAL CORPORATION-2023JNY00235

PATIENT
  Sex: Female
  Weight: 83.9 kg

DRUGS (2)
  1. QBREXZA [Suspect]
     Active Substance: GLYCOPYRRONIUM TOSYLATE
     Indication: Hyperhidrosis
     Dosage: UNK, 1X/DAY
     Dates: start: 20230320, end: 20231016
  2. ACCUTANE [Suspect]
     Active Substance: ISOTRETINOIN
     Dosage: 10 MG, EVERY 48 HOURS
     Route: 048

REACTIONS (7)
  - Dysphagia [Recovering/Resolving]
  - Oral discomfort [Recovering/Resolving]
  - Mucosal dryness [Recovered/Resolved]
  - Dry eye [Recovering/Resolving]
  - Dry mouth [Recovered/Resolved]
  - Vision blurred [Recovering/Resolving]
  - Headache [Recovering/Resolving]

NARRATIVE: CASE EVENT DATE: 20230101
